FAERS Safety Report 5461109-7 (Version None)
Quarter: 2007Q3

REPORT INFORMATION
  Report Type: 
  Country: None (occurrence: None)
  Receive Date: 20070920
  Receipt Date: 20070913
  Transmission Date: 20080115
  Serious: Yes (Other)
  Sender: FDA-Public Use
  Company Number: PHBS2007JP15211

PATIENT
  Age: 75 Year
  Sex: Female

DRUGS (3)
  1. CALBLOCK [Concomitant]
     Dosage: 16 MG, UNK
     Route: 048
     Dates: start: 20050314
  2. LOCHOL [Concomitant]
     Dosage: 20 MG, UNK
     Route: 048
     Dates: start: 20060208
  3. DIOVAN [Suspect]
     Indication: HYPERTENSION
     Dosage: 80 MG/DAY
     Route: 048
     Dates: start: 20050127, end: 20070530

REACTIONS (1)
  - INTERSTITIAL LUNG DISEASE [None]
